FAERS Safety Report 10261567 (Version 2)
Quarter: 2014Q2

REPORT INFORMATION
  Report Type: Spontaneous
  Country: JP (occurrence: JP)
  Receive Date: 20140626
  Receipt Date: 20140626
  Transmission Date: 20141212
  Serious: Yes (Hospitalization, Other)
  Sender: FDA-Public Use
  Company Number: PHHY2014JP068812

PATIENT
  Age: 64 Year
  Sex: Male

DRUGS (2)
  1. CLOZARIL [Suspect]
     Indication: SCHIZOPHRENIA
     Dosage: UNK
     Route: 048
     Dates: start: 20120328
  2. UBRETID [Suspect]
     Dosage: UNK UKN, UNK

REACTIONS (2)
  - Drug intolerance [Unknown]
  - Dysphagia [Unknown]
